FAERS Safety Report 6671897 (Version 2)
Quarter: 2019Q1

REPORT INFORMATION
  Report Type: Spontaneous
  Country: FR (occurrence: FR)
  Receive Date: 20060116
  Receipt Date: 20190205
  Transmission Date: 20190418
  Serious: Yes (Hospitalization)
  Sender: FDA-Public Use
  Company Number: FR-GLAXOSMITHKLINE-B0405831A

PATIENT
  Age: 84 Year
  Sex: Female

DRUGS (11)
  1. DEROXAT [Suspect]
     Active Substance: PAROXETINE HYDROCHLORIDE
     Route: 048
     Dates: end: 20051020
  2. TRIVASTAL [Suspect]
     Active Substance: PIRIBEDIL
     Route: 048
     Dates: end: 20051020
  3. EPHYNAL [Concomitant]
     Active Substance: .ALPHA.-TOCOPHEROL ACETATE
  4. LECTIL [Concomitant]
     Active Substance: BETAHISTINE HYDROCHLORIDE
  5. TANAKAN [Suspect]
     Active Substance: GINKGO
     Route: 048
     Dates: end: 20051020
  6. RISPERDAL [Suspect]
     Active Substance: RISPERIDONE
     Route: 048
     Dates: end: 20051020
  7. AMLOR [Suspect]
     Active Substance: AMLODIPINE BESYLATE
     Route: 048
     Dates: end: 20051020
  8. RELVENE [Concomitant]
  9. MEPRONIZINE [Concomitant]
     Active Substance: ACEPROMETAZINE MALEATE\MEPROBAMATE
  10. TRIMETAZIDINE [Suspect]
     Active Substance: TRIMETAZIDINE
     Route: 048
     Dates: end: 20051020
  11. STRESAM [Concomitant]
     Active Substance: ETIFOXINE

REACTIONS (1)
  - Fall [Recovered/Resolved]

NARRATIVE: CASE EVENT DATE: 20051019
